FAERS Safety Report 15478750 (Version 2)
Quarter: 2019Q1

REPORT INFORMATION
  Report Type: Report from Study
  Country: US (occurrence: US)
  Receive Date: 20181009
  Receipt Date: 20190206
  Transmission Date: 20190417
  Serious: Yes (Hospitalization)
  Sender: FDA-Public Use
  Company Number: PHHY2018US111243

PATIENT
  Age: 60 Year
  Sex: Female
  Weight: 58.96 kg

DRUGS (4)
  1. KEPPRA [Concomitant]
     Active Substance: LEVETIRACETAM
     Indication: PROPHYLAXIS
     Route: 065
  2. FLUDARABINE [Concomitant]
     Active Substance: FLUDARABINE PHOSPHATE
     Indication: PRODUCT USED FOR UNKNOWN INDICATION
     Dosage: 25 MG/M2, UNKNOWN
     Route: 065
     Dates: start: 20180913, end: 20180915
  3. CYCLOPHOSPHAMIDE. [Concomitant]
     Active Substance: CYCLOPHOSPHAMIDE
     Indication: PRODUCT USED FOR UNKNOWN INDICATION
     Dosage: 250 MG/M2, UNKNOWN
     Route: 065
     Dates: start: 20180913, end: 20180918
  4. KYMRIAH [Suspect]
     Active Substance: TISAGENLECLEUCEL
     Indication: DIFFUSE LARGE B-CELL LYMPHOMA
     Dosage: 2 DF, ONCE/SINGLE (2 X 10^6 CART)
     Route: 042
     Dates: start: 20180918

REACTIONS (13)
  - Pyrexia [Unknown]
  - Purulence [Unknown]
  - Hyporesponsive to stimuli [Unknown]
  - Aphasia [Unknown]
  - Cytokine release syndrome [Recovering/Resolving]
  - Disorientation [Unknown]
  - Blood pressure systolic increased [Unknown]
  - Incoherent [Unknown]
  - Iritis [Unknown]
  - Neurotoxicity [Recovering/Resolving]
  - Somnolence [Unknown]
  - Depressed level of consciousness [Unknown]
  - Intracranial pressure increased [Unknown]

NARRATIVE: CASE EVENT DATE: 20180921
